FAERS Safety Report 7423671-4 (Version None)
Quarter: 2011Q2

REPORT INFORMATION
  Report Type: 
  Country: None (occurrence: None)
  Receive Date: 20110413
  Receipt Date: 20110413
  Transmission Date: 20111010
  Serious: Yes (Hospitalization)
  Sender: FDA-Public Use
  Company Number: None

PATIENT
  Sex: Female
  Weight: 56.4 kg

DRUGS (16)
  1. BEVACIZUMAB 15MG/KG GENENTECH [Suspect]
     Indication: NON-SMALL CELL LUNG CANCER
     Dosage: 15 MG/KG X 56.4 KG    846MG EVERY 21 DAY IV
     Route: 042
     Dates: start: 20100120, end: 20110329
  2. CRESTOR [Concomitant]
  3. LOPERAMIDE [Concomitant]
  4. BENADRYL [Concomitant]
  5. BENICAR [Concomitant]
  6. METOPROLOL TARTRATE [Concomitant]
  7. TRUSOPT [Concomitant]
  8. ESOMEPRAZOLE MAGNESIUM (NEXIUM) [Concomitant]
  9. IRON [Concomitant]
  10. CHOLECALCIFEROL (VITAMIN D) [Concomitant]
  11. CLEOCIN T [Concomitant]
  12. ERLOTINIB 100MG GENENTECH [Suspect]
     Dosage: 100 MG EVERY DAY ORAL
     Route: 048
     Dates: start: 20100120
  13. LORAZEPAM [Concomitant]
  14. MULTIPLE VITAMINS-MINERALS (CENTRUM SILVER OR) [Concomitant]
  15. SITAGLIPTIN PHOSPHATE (JANUVIA OR) [Concomitant]
  16. VEXOL [Concomitant]

REACTIONS (2)
  - DIARRHOEA [None]
  - ABDOMINAL PAIN [None]
